FAERS Safety Report 14081834 (Version 1)
Quarter: 2017Q4

REPORT INFORMATION
  Report Type: Spontaneous
  Country: GB (occurrence: GB)
  Receive Date: 20171013
  Receipt Date: 20171013
  Transmission Date: 20180321
  Serious: Yes (Hospitalization, Other)
  Sender: FDA-Public Use
  Company Number: GB-PFIZER INC-2017437709

PATIENT
  Sex: Female

DRUGS (6)
  1. DEFEROXAMINE MESILATE [Suspect]
     Active Substance: DEFEROXAMINE MESYLATE
     Dosage: NIGHT
     Route: 058
     Dates: start: 20170926
  2. SODIUM CHLORIDE. [Suspect]
     Active Substance: SODIUM CHLORIDE
     Indication: MEDICATION DILUTION
     Dosage: 35 ML, (5X/WEEK); COMPOUNDED WITH DESFERRIOXAMINE
     Route: 058
     Dates: start: 20170830
  3. SODIUM CHLORIDE. [Suspect]
     Active Substance: SODIUM CHLORIDE
     Dosage: NIGHT
     Route: 058
     Dates: start: 20170926
  4. SODIUM CHLORIDE. [Suspect]
     Active Substance: SODIUM CHLORIDE
     Dosage: 35 ML, (5X/WEEK); LAST ADMINISTRATION
     Route: 058
     Dates: start: 20170921, end: 20170922
  5. DEFEROXAMINE MESILATE [Suspect]
     Active Substance: DEFEROXAMINE MESYLATE
     Dosage: 2 G, 5X/WEEK (LAST ADMINISTRATION)
     Route: 058
     Dates: start: 20170921, end: 20170922
  6. DEFEROXAMINE MESILATE [Suspect]
     Active Substance: DEFEROXAMINE MESYLATE
     Dosage: 2 G, 5X/WEEK (COMPOUNDED WITH SODIUM CHLORIDE)
     Route: 058
     Dates: start: 20170830

REACTIONS (4)
  - Dehydration [Unknown]
  - Decreased appetite [Unknown]
  - Abdominal pain upper [Recovering/Resolving]
  - Nausea [Unknown]

NARRATIVE: CASE EVENT DATE: 201709
